FAERS Safety Report 23544015 (Version 1)
Quarter: 2024Q1

REPORT INFORMATION
  Report Type: Spontaneous
  Country: US (occurrence: None)
  Receive Date: 20240216
  Receipt Date: 20240216
  Transmission Date: 20240410
  Serious: Yes (Life-Threatening, Hospitalization)
  Sender: FDA-Public Use
  Company Number: None

PATIENT
  Age: 67 Year
  Sex: Female
  Weight: 50.12 kg

DRUGS (1)
  1. APIXABAN [Suspect]
     Active Substance: APIXABAN
     Indication: Pulmonary embolism
     Dosage: FREQUENCY : TWICE A DAY;?
     Route: 048
     Dates: start: 20221105, end: 20231208

REACTIONS (20)
  - Hypoxia [None]
  - Rectal perforation [None]
  - Intestinal ischaemia [None]
  - Flatulence [None]
  - Anaemia [None]
  - Haematochezia [None]
  - Septic shock [None]
  - Pneumatosis intestinalis [None]
  - Melaena [None]
  - Diarrhoea [None]
  - Tachycardia [None]
  - Acidosis [None]
  - Troponin increased [None]
  - Coronary artery disease [None]
  - Atrial flutter [None]
  - Atrial fibrillation [None]
  - Clostridial infection [None]
  - Blood culture positive [None]
  - Clostridium test positive [None]
  - Myocardial ischaemia [None]

NARRATIVE: CASE EVENT DATE: 20231208
